FAERS Safety Report 13602954 (Version 1)
Quarter: 2017Q2

REPORT INFORMATION
  Report Type: Spontaneous
  Country: FR (occurrence: FR)
  Receive Date: 20170601
  Receipt Date: 20170601
  Transmission Date: 20170830
  Serious: Yes (Death, Hospitalization)
  Sender: FDA-Public Use
  Company Number: FR-009507513-1705FRA014904

PATIENT
  Age: 62 Year
  Sex: Male

DRUGS (4)
  1. SOLUPRED [Concomitant]
     Active Substance: PREDNISOLONE
  2. KEPPRA [Suspect]
     Active Substance: LEVETIRACETAM
     Indication: GLIOBLASTOMA
     Dosage: 500 MG, BID
     Route: 048
     Dates: start: 20170307
  3. ZELITREX [Concomitant]
     Active Substance: VALACYCLOVIR HYDROCHLORIDE
     Indication: PROPHYLAXIS
     Dosage: 1 G, BID
     Route: 048
     Dates: start: 20170421
  4. TEMODAL [Suspect]
     Active Substance: TEMOZOLOMIDE
     Indication: GLIOBLASTOMA
     Dosage: 140 MG, QD
     Route: 048
     Dates: start: 20170307, end: 20170414

REACTIONS (3)
  - Lymphopenia [Fatal]
  - Thrombocytopenia [Fatal]
  - Agranulocytosis [Recovered/Resolved]

NARRATIVE: CASE EVENT DATE: 20170315
